FAERS Safety Report 8198930-0 (Version None)
Quarter: 2012Q1

REPORT INFORMATION
  Report Type: 
  Country: None (occurrence: None)
  Receive Date: 20120309
  Receipt Date: 20120228
  Transmission Date: 20120608
  Serious: No
  Sender: FDA-Public Use
  Company Number: US-AMGEN-USASP2012003632

PATIENT
  Age: 73 Year
  Sex: Female
  Weight: 68 kg

DRUGS (1)
  1. PROLIA [Suspect]
     Indication: OSTEOPOROSIS POSTMENOPAUSAL
     Dosage: 60 MG, Q6MO
     Route: 058
     Dates: start: 20101116, end: 20111116

REACTIONS (11)
  - SOMNOLENCE [None]
  - DYSPHAGIA [None]
  - INJECTION SITE PAIN [None]
  - PAIN [None]
  - FEELING ABNORMAL [None]
  - TOOTHACHE [None]
  - EATING DISORDER [None]
  - DIZZINESS [None]
  - ABDOMINAL DISCOMFORT [None]
  - GINGIVAL PAIN [None]
  - ARTHRALGIA [None]
